FAERS Safety Report 9412196 (Version 1)
Quarter: 2013Q3

REPORT INFORMATION
  Report Type: Spontaneous
  Country: US (occurrence: US)
  Receive Date: 20130722
  Receipt Date: 20130722
  Transmission Date: 20140515
  Serious: Yes (Other)
  Sender: FDA-Public Use
  Company Number: US-BAYER-2013-087175

PATIENT
  Age: 82 Year
  Sex: Female
  Weight: 77.1 kg

DRUGS (19)
  1. BAYER GENUINE ASPIRIN ORIGINAL STRENGTH [Suspect]
  2. IBUPROFEN [Suspect]
  3. LYRICA [Concomitant]
     Indication: NEUROPATHY PERIPHERAL
     Dosage: 50 MG, BID
     Dates: end: 201302
  4. LYRICA [Concomitant]
     Indication: NEUROPATHY PERIPHERAL
     Dosage: 300 MG, QD
  5. LYRICA [Concomitant]
     Indication: NEUROPATHY PERIPHERAL
     Dosage: 75 MG, QID
  6. BYSTOLIC [Concomitant]
     Indication: CARDIAC DISORDER
     Dosage: 2.5 MG, TID
  7. ISOSORBIDE [Concomitant]
     Indication: CARDIAC DISORDER
  8. PREGABALIN [Concomitant]
     Dosage: UNK
     Dates: end: 201202
  9. DIOVAN [Concomitant]
     Indication: HYPERTENSION
  10. TRAMADOL [Concomitant]
  11. ALBUTEROL INHALER [Concomitant]
  12. B-COMPLEX [VITAMIN-B-KOMPLEX STANDARD] [Concomitant]
  13. OS-CAL D [Concomitant]
  14. OMEPRAZOLE [Concomitant]
  15. PLAVIX [Concomitant]
  16. CRESTOR [Concomitant]
  17. CALCITROL [Concomitant]
  18. GABAPENTIN [Concomitant]
  19. TYLENOL W/CODEINE NO. 3 [Concomitant]

REACTIONS (1)
  - Haemorrhagic diathesis [Unknown]
